FAERS Safety Report 20227051 (Version 1)
Quarter: 2021Q4

REPORT INFORMATION
  Report Type: Spontaneous
  Country: AU (occurrence: AU)
  Receive Date: 20211224
  Receipt Date: 20211224
  Transmission Date: 20220303
  Serious: Yes (Life-Threatening, Other)
  Sender: FDA-Public Use
  Company Number: AU-MYLANLABS-2011S1018362

PATIENT
  Age: 30 Year
  Sex: Female

DRUGS (1)
  1. EPIPEN [Suspect]
     Active Substance: EPINEPHRINE
     Indication: Anaphylactic reaction
     Dosage: 300 ?G,ONCE
     Route: 030
     Dates: start: 201106, end: 201106

REACTIONS (1)
  - Device failure [Recovered/Resolved]

NARRATIVE: CASE EVENT DATE: 20110601
